FAERS Safety Report 25001773 (Version 1)
Quarter: 2025Q1

REPORT INFORMATION
  Report Type: Spontaneous
  Country: AE (occurrence: AE)
  Receive Date: 20250224
  Receipt Date: 20250224
  Transmission Date: 20250409
  Serious: Yes (Hospitalization, Other)
  Sender: Haleon PLC
  Company Number: AE-HALEON-2229017

PATIENT
  Age: 39 Year
  Sex: Female

DRUGS (1)
  1. IBUPROFEN [Suspect]
     Active Substance: IBUPROFEN
     Indication: Arthralgia

REACTIONS (15)
  - Stevens-Johnson syndrome [Unknown]
  - Oral blood blister [Unknown]
  - Breath odour [Unknown]
  - Saliva altered [Unknown]
  - Enanthema [Unknown]
  - Mouth ulceration [Unknown]
  - Oropharyngeal pain [Unknown]
  - Pyrexia [Unknown]
  - Rash [Unknown]
  - Vomiting [Unknown]
  - Diarrhoea [Unknown]
  - Dysuria [Unknown]
  - Burning sensation [Unknown]
  - Blister [Unknown]
  - Skin ulcer [Unknown]
